FAERS Safety Report 7325440-2 (Version None)
Quarter: 2011Q1

REPORT INFORMATION
  Report Type: 
  Country: None (occurrence: None)
  Receive Date: 20110302
  Receipt Date: 20110222
  Transmission Date: 20110831
  Serious: Yes (Life-Threatening, Hospitalization)
  Sender: FDA-Public Use
  Company Number: DE-JNJFOC-20110203379

PATIENT
  Age: 76 Year
  Sex: Female
  Weight: 57 kg

DRUGS (4)
  1. GOLIMUMAB [Suspect]
     Indication: RHEUMATOID ARTHRITIS
     Route: 058
  2. METHOTREXATE [Suspect]
     Indication: RHEUMATOID ARTHRITIS
     Route: 058
  3. PREDNISOLONE [Suspect]
     Indication: RHEUMATOID ARTHRITIS
     Route: 048
  4. FENTANYL [Concomitant]
     Indication: RHEUMATOID ARTHRITIS
     Route: 062

REACTIONS (5)
  - PNEUMONIA [None]
  - SEPSIS [None]
  - RENAL FAILURE ACUTE [None]
  - HAEMODIALYSIS [None]
  - RESPIRATORY FAILURE [None]
